FAERS Safety Report 9006218 (Version 2)
Quarter: 2013Q1

REPORT INFORMATION
  Report Type: Spontaneous
  Country: IT (occurrence: IT)
  Receive Date: 20130110
  Receipt Date: 20130124
  Transmission Date: 20140127
  Serious: Yes (Hospitalization)
  Sender: FDA-Public Use
  Company Number: IT-NOVOPROD-368127

PATIENT
  Age: 83 Year
  Sex: Male

DRUGS (9)
  1. NOVONORM [Suspect]
     Indication: TYPE 2 DIABETES MELLITUS
     Dosage: 5 TABLETS
     Route: 048
     Dates: start: 20120201
  2. LANTUS [Suspect]
     Indication: TYPE 2 DIABETES MELLITUS
     Dosage: 26 U/ML DIE
     Route: 058
  3. DOXAZOSINA [Concomitant]
  4. ATORVASTATINA [Concomitant]
  5. ALLOPURINOLO [Concomitant]
  6. LASIX                              /00032601/ [Concomitant]
  7. CORDARONE [Concomitant]
  8. LASITONE [Concomitant]
  9. CARDIOASPIRIN [Concomitant]

REACTIONS (4)
  - Confusional state [Recovered/Resolved]
  - Speech disorder [Recovered/Resolved]
  - Loss of consciousness [Recovered/Resolved]
  - Hypoglycaemia [Recovered/Resolved]
